FAERS Safety Report 13243626 (Version 4)
Quarter: 2017Q2

REPORT INFORMATION
  Report Type: Report from Study
  Country: CA (occurrence: CA)
  Receive Date: 20170217
  Receipt Date: 20170515
  Transmission Date: 20170830
  Serious: Yes (Hospitalization, Other)
  Sender: FDA-Public Use
  Company Number: CA-AMGEN-CANSL2017023765

PATIENT
  Age: 84 Year
  Sex: Female
  Weight: 45 kg

DRUGS (10)
  1. PROLIA [Suspect]
     Active Substance: DENOSUMAB
     Indication: OSTEOPOROSIS POSTMENOPAUSAL
     Dosage: 60 MG, Q6MO
     Route: 058
     Dates: start: 20151103, end: 20161102
  2. VITAMIN D [Concomitant]
     Active Substance: CHOLECALCIFEROL
  3. COVERSYL [Concomitant]
     Active Substance: PERINDOPRIL
     Indication: BLOOD PRESSURE ABNORMAL
     Dosage: 2 MG, QD
     Dates: start: 20150715
  4. NITRO [Concomitant]
     Active Substance: NITROGLYCERIN
     Indication: ANGINA PECTORIS
     Dosage: 0.2 MG, NITROPATCH, OFF AT NIGHT
     Dates: start: 20150715
  5. PLAVIX [Concomitant]
     Active Substance: CLOPIDOGREL BISULFATE
     Dosage: 75 MG, UNK
     Dates: end: 201607
  6. METOPROLOL. [Concomitant]
     Active Substance: METOPROLOL
     Indication: MYOCARDIAL ISCHAEMIA
     Dosage: 25 MG, BID
     Dates: start: 20150725
  7. ASA [Concomitant]
     Active Substance: ASPIRIN
     Indication: PLATELET DISORDER
     Dosage: 81 MG, QD
     Dates: start: 20150715
  8. PRAVASTATIN. [Concomitant]
     Active Substance: PRAVASTATIN
     Indication: DYSLIPIDAEMIA
     Dosage: 40 MG, QD
     Dates: start: 20150715
  9. COENZYME Q10 [Concomitant]
     Active Substance: UBIDECARENONE
     Indication: BACK PAIN
     Dosage: UNK UNK, QD
  10. CALCIUM [Concomitant]
     Active Substance: CALCIUM

REACTIONS (17)
  - Erythema [Unknown]
  - Device failure [Unknown]
  - Dehydration [Unknown]
  - Loose tooth [Not Recovered/Not Resolved]
  - Tooth abscess [Recovered/Resolved]
  - Weight decreased [Unknown]
  - Blood pressure abnormal [Unknown]
  - Bone disorder [Unknown]
  - Mass [Unknown]
  - Vomiting [Unknown]
  - Osteonecrosis of jaw [Not Recovered/Not Resolved]
  - Feeling hot [Unknown]
  - Tooth disorder [Not Recovered/Not Resolved]
  - Cystitis [Unknown]
  - Jaw disorder [Not Recovered/Not Resolved]
  - Dizziness [Unknown]
  - Asthenia [Unknown]

NARRATIVE: CASE EVENT DATE: 2016
